FAERS Safety Report 5521901-7 (Version None)
Quarter: 2007Q4

REPORT INFORMATION
  Report Type: 
  Country: None (occurrence: None)
  Receive Date: 20071115
  Receipt Date: 20071030
  Transmission Date: 20080405
  Serious: Yes (Death)
  Sender: FDA-Public Use
  Company Number: 8027324

PATIENT
  Age: 32 Year
  Sex: Male
  Weight: 108.18 kg

DRUGS (5)
  1. KEPPRA [Suspect]
     Indication: EPILEPSY
     Dosage: 1500 MG 2/D; PO
     Route: 048
     Dates: start: 20070409, end: 20070915
  2. NEURONTIN [Concomitant]
  3. PROZAC [Concomitant]
  4. VALIUM [Concomitant]
  5. ELAVIL [Concomitant]

REACTIONS (2)
  - COMPLETED SUICIDE [None]
  - HOMICIDE [None]
